FAERS Safety Report 19782721 (Version 1)
Quarter: 2021Q3

REPORT INFORMATION
  Report Type: Spontaneous
  Country: US (occurrence: US)
  Receive Date: 20210902
  Receipt Date: 20210902
  Transmission Date: 20211014
  Serious: Yes (Other)
  Sender: FDA-Public Use
  Company Number: US-PFIZER INC-202101081586

PATIENT
  Sex: Male

DRUGS (3)
  1. RUXIENCE [Suspect]
     Active Substance: RITUXIMAB-PVVR
     Indication: MARGINAL ZONE LYMPHOMA
     Dosage: 2 MONTH REGIMEN, EVERY 3 MONTHS
  2. RITUXAN [Suspect]
     Active Substance: RITUXIMAB
     Indication: MARGINAL ZONE LYMPHOMA
     Dosage: UNK, EVERY MONTH
  3. BENDAMUSTINE [Suspect]
     Active Substance: BENDAMUSTINE
     Indication: MARGINAL ZONE LYMPHOMA
     Dosage: UNK

REACTIONS (2)
  - Off label use [Unknown]
  - Lymphocyte count decreased [Recovering/Resolving]
